FAERS Safety Report 9654388 (Version 1)
Quarter: 2013Q4

REPORT INFORMATION
  Report Type: Spontaneous
  Country: GB (occurrence: GB)
  Receive Date: 20131029
  Receipt Date: 20131029
  Transmission Date: 20140711
  Serious: Yes (Other)
  Sender: FDA-Public Use
  Company Number: GB-WATSON-2013-19761

PATIENT
  Age: 14 Year
  Sex: Male
  Weight: 76 kg

DRUGS (3)
  1. TOPIRAMATE (UNKNOWN) [Suspect]
     Indication: MIGRAINE
     Dosage: 25 MG, UNKNOWN
     Route: 048
     Dates: start: 20130930, end: 20131001
  2. FLIXONASE [Concomitant]
     Indication: SINUSITIS
     Dosage: 1 DF, PRN; ONE PUFF. AS REQUIRED.
     Route: 065
     Dates: start: 201307
  3. MIGRALEVE                          /00116401/ [Concomitant]
     Indication: MIGRAINE
     Dosage: 1 DF, PRN; AS REQUIRED.
     Route: 048
     Dates: start: 201307

REACTIONS (3)
  - Gait disturbance [Not Recovered/Not Resolved]
  - Dizziness [Not Recovered/Not Resolved]
  - Mobility decreased [Not Recovered/Not Resolved]
